FAERS Safety Report 15584572 (Version 3)
Quarter: 2019Q1

REPORT INFORMATION
  Report Type: Report from Study
  Country: DE (occurrence: DE)
  Receive Date: 20181102
  Receipt Date: 20190123
  Transmission Date: 20190417
  Serious: Yes (Death)
  Sender: FDA-Public Use
  Company Number: DE-BAYER-RCH-234733

PATIENT
  Age: 60 Year
  Sex: Female
  Weight: 40 kg

DRUGS (59)
  1. EUGLUCON [Suspect]
     Active Substance: GLYBURIDE
     Indication: DIABETES MELLITUS
     Dosage: 1 DF, QD
     Route: 048
     Dates: start: 19980820, end: 19980821
  2. ISOKET [Suspect]
     Active Substance: ISOSORBIDE DINITRATE
     Indication: HYPERTENSION
     Dosage: 60 MG
     Route: 048
     Dates: start: 19980818
  3. VANCOMYCIN [Suspect]
     Active Substance: VANCOMYCIN
     Indication: PNEUMONIA
     Dosage: 500 MG
     Route: 042
     Dates: start: 19980821, end: 19980826
  4. PASPERTIN [METOCLOPRAMIDE HYDROCHLORIDE] [Suspect]
     Active Substance: METOCLOPRAMIDE HYDROCHLORIDE
     Indication: NAUSEA
     Dosage: 20 GTT
     Route: 048
     Dates: start: 19980814, end: 19980818
  5. NOVODIGAL [DIGOXIN] [Concomitant]
     Active Substance: DIGOXIN
     Indication: CARDIAC FAILURE
     Dosage: 0.2 MG, QD
     Route: 048
     Dates: end: 19980812
  6. ANTRA [OMEPRAZOLE] [Concomitant]
     Active Substance: OMEPRAZOLE
     Indication: PROPHYLAXIS AGAINST GASTROINTESTINAL ULCER
     Dosage: 20 MG
     Route: 048
     Dates: end: 19980818
  7. STEROFUNDIN [Concomitant]
     Active Substance: CALCIUM CHLORIDE\MAGNESIUM CHLORIDE\POTASSIUM CHLORIDE\SODIUM ACETATE\SODIUM CHLORIDE
     Indication: FLUID REPLACEMENT
     Dosage: 1000 ML; THE PATIENT RECEIVED 4500 ML (APPROX.) OF STEROFUNDIN OVER THIS PERIOD;
     Route: 042
     Dates: start: 19980821, end: 19980828
  8. TAVEGIL [CLEMASTINE] [Concomitant]
     Indication: ERYTHEMA
     Dosage: UNIT DOSE=1 AMPULE DAILY DOSE=1 AMPULE ();
     Route: 042
     Dates: start: 19980826, end: 19980826
  9. ZIENAM [Concomitant]
     Active Substance: CILASTATIN SODIUM\IMIPENEM
     Indication: SEPSIS
     Dosage: 500 MG, QD
     Route: 042
     Dates: start: 19980828
  10. ENALAPRIL MALEATE. [Suspect]
     Active Substance: ENALAPRIL MALEATE
     Indication: HYPERTENSION
     Dosage: 5 MG, QD
     Route: 048
     Dates: start: 19980811, end: 19980817
  11. PASPERTIN [METOCLOPRAMIDE HYDROCHLORIDE] [Concomitant]
     Active Substance: METOCLOPRAMIDE HYDROCHLORIDE
     Indication: NAUSEA
     Dosage: 20 GTT
     Route: 048
     Dates: start: 19980821
  12. PASPERTIN [METOCLOPRAMIDE HYDROCHLORIDE] [Concomitant]
     Active Substance: METOCLOPRAMIDE HYDROCHLORIDE
     Indication: NAUSEA
     Dosage: 60 GTT (DAILY DOSE), , ORAL
     Route: 048
     Dates: start: 19980820, end: 19980820
  13. ERYFER [FERROUS SULFATE] [Concomitant]
     Indication: ANAEMIA
     Route: 048
     Dates: end: 19980807
  14. BEPANTHEN [DEXPANTHENOL] [Concomitant]
     Indication: CIRCULATORY COLLAPSE
     Dosage: DAILY DOSE=4 AMPULE ();
     Route: 042
     Dates: start: 19980808, end: 19980808
  15. ASPIRIN. [Suspect]
     Active Substance: ASPIRIN
     Indication: THROMBOSIS PROPHYLAXIS
     Dosage: 100 MG, UNK
     Route: 048
  16. DILATREND [Suspect]
     Active Substance: CARVEDILOL
     Indication: HYPERTENSION
     Dosage: 6.25 MG
     Route: 048
     Dates: start: 19980811
  17. HEPARIN-CALCIUM [Suspect]
     Active Substance: HEPARIN CALCIUM
     Indication: THROMBOSIS PROPHYLAXIS
     Dosage: 7500 IU
     Route: 058
     Dates: start: 19980811, end: 19980818
  18. XANEF [ENALAPRIL MALEATE] [Suspect]
     Active Substance: ENALAPRIL MALEATE
     Indication: HYPERTENSION
     Dosage: 5 MG
     Route: 048
     Dates: start: 19980818
  19. PASPERTIN [METOCLOPRAMIDE HYDROCHLORIDE] [Suspect]
     Active Substance: METOCLOPRAMIDE HYDROCHLORIDE
     Indication: NAUSEA
     Dosage: UNK; 1 VIAL PER DAY;
     Route: 042
  20. TAGAMET [Concomitant]
     Active Substance: CIMETIDINE
     Indication: PROPHYLAXIS AGAINST GASTROINTESTINAL ULCER
     Dosage: DAILY DOSE=1 AMPULE ();
     Route: 042
     Dates: start: 19980826, end: 19980826
  21. PARACETAMOL [Concomitant]
     Active Substance: ACETAMINOPHEN
     Indication: ANALGESIC THERAPY
     Dosage: 1 DF, QD
     Route: 048
     Dates: start: 19980826
  22. INSULIN ZINC SUSPENSION [Concomitant]
     Indication: DIABETES MELLITUS
     Route: 058
  23. EUGLUCON [Suspect]
     Active Substance: GLYBURIDE
     Indication: DIABETES MELLITUS
     Dosage: 1 DF
     Route: 048
     Dates: end: 19980818
  24. DIGIMERCK [Suspect]
     Active Substance: DIGITOXIN
     Indication: CARDIAC FAILURE
     Dosage: 1 DF
     Route: 048
     Dates: start: 19980812
  25. POTASSIUM CHLORIDE. [Concomitant]
     Active Substance: POTASSIUM CHLORIDE
     Indication: BLOOD POTASSIUM DECREASED
     Dosage: 2 DF, QD
     Route: 048
     Dates: start: 19980814, end: 19980814
  26. POTASSIUM CHLORIDE. [Concomitant]
     Active Substance: POTASSIUM CHLORIDE
     Indication: BLOOD POTASSIUM DECREASED
     Dosage: 3 DF, QD
     Route: 048
     Dates: start: 19980818, end: 19980820
  27. SOLU-DECORTIN-H [Concomitant]
     Active Substance: PREDNISOLONE SODIUM SUCCINATE
     Indication: ERYTHEMA
     Dosage: 1 DF
     Route: 042
     Dates: start: 19980826, end: 19980826
  28. DEXTROSE. [Concomitant]
     Active Substance: DEXTROSE
  29. POTASSIUM CITRATE. [Concomitant]
     Active Substance: POTASSIUM CITRATE
     Indication: BLOOD POTASSIUM DECREASED
     Dosage: 1 DF, QD
     Route: 048
     Dates: start: 19980821, end: 19980821
  30. AMINOQUINURIDE HYDROCHLORIDE [Concomitant]
     Indication: DIABETES MELLITUS
     Dosage: 8 IU, QD
     Route: 058
  31. KALIUM-DURILES [Concomitant]
     Active Substance: POTASSIUM
     Indication: HYPOKALAEMIA
     Dosage: 2 DF; IN TOTAL;
     Dates: start: 19980814, end: 19980814
  32. UNAT [TORASEMIDE] [Suspect]
     Active Substance: TORSEMIDE
     Indication: CARDIAC FAILURE
     Dosage: 40 MG, QD
     Route: 048
     Dates: start: 19980808
  33. NOVALGIN (METAMIZOLE SODIUM) [Suspect]
     Active Substance: METAMIZOLE SODIUM
     Indication: PAIN
     Dosage: 20 GTT
     Route: 048
     Dates: start: 19980811, end: 19980811
  34. LOPIRIN COR [Suspect]
     Active Substance: CAPTOPRIL
     Indication: HYPERTENSION
     Dosage: 1 DF, BID
     Route: 048
     Dates: end: 19980806
  35. PASPERTIN [METOCLOPRAMIDE HYDROCHLORIDE] [Suspect]
     Active Substance: METOCLOPRAMIDE HYDROCHLORIDE
     Indication: NAUSEA
     Dosage: 1 UNK
     Route: 048
     Dates: start: 19980820, end: 19980820
  36. GLIBENCLAMIDE [Suspect]
     Active Substance: GLYBURIDE
     Dosage: 1 DF, QD
     Route: 048
     Dates: start: 19980820, end: 19980821
  37. DOPMIN [DOPAMINE] [Concomitant]
     Indication: CIRCULATORY COLLAPSE
     Dosage: AS PER BODY WEIGHT ();
     Route: 042
     Dates: start: 19980808, end: 19980808
  38. POTASSIUM CHLORIDE. [Concomitant]
     Active Substance: POTASSIUM CHLORIDE
     Indication: BLOOD POTASSIUM DECREASED
     Dosage: 6 MMOL, UNK
     Route: 042
     Dates: start: 19980828, end: 19980828
  39. XANEF [ENALAPRIL MALEATE] [Suspect]
     Active Substance: ENALAPRIL MALEATE
     Indication: HYPERTENSION
     Dosage: 10 MG
     Route: 048
     Dates: start: 19980811, end: 19980817
  40. LASIX [Suspect]
     Active Substance: FUROSEMIDE
     Indication: CARDIAC FAILURE
     Dosage: 1 DF
     Route: 048
     Dates: end: 19980406
  41. PASPERTIN [METOCLOPRAMIDE HYDROCHLORIDE] [Suspect]
     Active Substance: METOCLOPRAMIDE HYDROCHLORIDE
     Indication: NAUSEA
     Dosage: 1 DF, QD;
     Route: 042
     Dates: start: 19980808, end: 19980826
  42. PASPERTIN [METOCLOPRAMIDE HYDROCHLORIDE] [Suspect]
     Active Substance: METOCLOPRAMIDE HYDROCHLORIDE
     Indication: NAUSEA
     Dosage: 20 GTT
     Route: 048
  43. CARBIMAZOL [Concomitant]
     Active Substance: CARBIMAZOLE
     Indication: HYPERTHYROIDISM
     Dosage: BID/TID;
     Route: 048
  44. KALIUMCHLORID [Concomitant]
     Active Substance: POTASSIUM CHLORIDE
     Indication: BLOOD POTASSIUM DECREASED
     Dosage: 6 MMOL
     Route: 042
     Dates: start: 19980828, end: 19980828
  45. KALINOR-BRAUSETABLETTEN [Concomitant]
     Active Substance: POTASSIUM CARBONATE\POTASSIUM CITRATE
     Indication: BLOOD POTASSIUM DECREASED
     Route: 048
     Dates: start: 19980824, end: 19980825
  46. FRAGMIN P [Suspect]
     Active Substance: DALTEPARIN SODIUM
     Indication: THROMBOSIS PROPHYLAXIS
     Dosage: 1 DF
     Route: 058
     Dates: start: 19980818
  47. GLIBENCLAMIDE [Suspect]
     Active Substance: GLYBURIDE
     Dosage: 1 DF, QD
     Route: 048
     Dates: start: 19980820, end: 19980821
  48. ZOCOR [Concomitant]
     Active Substance: SIMVASTATIN
     Indication: HYPERTENSION
     Dosage: 20 MG, QD
     Route: 048
     Dates: start: 19980803, end: 19980818
  49. KALINOR-BRAUSETABLETTEN [Concomitant]
     Active Substance: POTASSIUM CARBONATE\POTASSIUM CITRATE
     Indication: BLOOD POTASSIUM DECREASED
     Dosage: 1 DF
     Route: 048
     Dates: start: 19980821, end: 19980821
  50. GLUCOSE [Concomitant]
     Active Substance: DEXTROSE
     Indication: FLUID REPLACEMENT
     Dosage: 500 ML
     Route: 042
     Dates: start: 19980824, end: 19980824
  51. TUTOFUSIN [CALCIUM CHLORIDE;MAGNESIUM CHLORIDE;POTASSIUM CHLORIDE;SODI [Concomitant]
     Indication: FLUID REPLACEMENT
     Dosage: 1000 ML
     Route: 042
  52. DILATREND [Suspect]
     Active Substance: CARVEDILOL
     Indication: HYPERTONIA
     Dosage: 13 MG, QD
  53. ISOKET [Suspect]
     Active Substance: ISOSORBIDE DINITRATE
     Indication: HYPERTONIA
  54. BENZYLPENICILLIN SODIUM [Suspect]
     Active Substance: PENICILLIN G SODIUM
     Indication: PNEUMONIA
     Dosage: 10 MIU
     Route: 042
     Dates: start: 19980821, end: 19980826
  55. IRENAT [Concomitant]
     Active Substance: SODIUM PERCHLORATE
     Indication: HYPERTHYROIDISM
     Route: 048
     Dates: end: 19980828
  56. KALIUMCHLORID [Concomitant]
     Active Substance: POTASSIUM CHLORIDE
     Indication: BLOOD POTASSIUM DECREASED
     Dosage: 1 DF
     Route: 048
     Dates: start: 19980818, end: 19980820
  57. SORTIS [Concomitant]
     Active Substance: ATORVASTATIN
     Indication: LIPIDS INCREASED
     Route: 048
     Dates: start: 19980826
  58. INSULIN [Concomitant]
     Active Substance: INSULIN NOS
     Indication: DIABETES MELLITUS
     Route: 058
  59. LOPIRIN COR [Suspect]
     Active Substance: CAPTOPRIL
     Indication: HYPERTONIA
     Dosage: 1 DF
     Route: 048

REACTIONS (3)
  - Circulatory collapse [Fatal]
  - Septic shock [Fatal]
  - Toxic epidermal necrolysis [Fatal]

NARRATIVE: CASE EVENT DATE: 19980826
